FAERS Safety Report 6419810-4 (Version None)
Quarter: 2009Q4

REPORT INFORMATION
  Report Type: 
  Country: None (occurrence: None)
  Receive Date: 20091029
  Receipt Date: 20091016
  Transmission Date: 20100525
  Serious: Yes (Hospitalization)
  Sender: FDA-Public Use
  Company Number: ES-GENENTECH-220825

PATIENT
  Sex: Male
  Weight: 70.2 kg

DRUGS (5)
  1. BEVACIZUMAB [Suspect]
     Indication: COLON CANCER
     Dosage: 365 MG, Q4W
     Route: 042
     Dates: start: 20051130, end: 20051226
  2. OXALIPLATIN [Suspect]
     Indication: COLON CANCER
     Dosage: 154 MG, Q4W
     Route: 042
     Dates: start: 20051130
  3. FOLINIC ACID [Suspect]
     Indication: COLON CANCER
     Dosage: 360 MG, Q4W
     Route: 042
     Dates: start: 20051130
  4. FLUOROURACIL [Suspect]
     Indication: COLON CANCER
     Dosage: 725 MG, Q4W
     Route: 040
     Dates: start: 20051130
  5. FLUOROURACIL [Suspect]
     Dosage: 1080 MG, Q4W
     Route: 042

REACTIONS (1)
  - SMALL INTESTINAL PERFORATION [None]
